FAERS Safety Report 15602235 (Version 2)
Quarter: 2019Q2

REPORT INFORMATION
  Report Type: Spontaneous
  Country: US (occurrence: US)
  Receive Date: 20181109
  Receipt Date: 20190610
  Transmission Date: 20190711
  Serious: Yes (Disabling, Other)
  Sender: FDA-Public Use
  Company Number: US-JNJFOC-20180908005

PATIENT
  Sex: Female

DRUGS (3)
  1. LISINOPRIL AND HYDROCHLOROTHIAZIDE [Concomitant]
     Active Substance: HYDROCHLOROTHIAZIDE\LISINOPRIL
     Indication: HYPERTENSION
     Route: 065
     Dates: start: 2006
  2. INVOKAMET [Suspect]
     Active Substance: CANAGLIFLOZIN\METFORMIN HYDROCHLORIDE
     Indication: PRODUCT USED FOR UNKNOWN INDICATION
     Dosage: 150MG/1000MG
     Route: 048
     Dates: start: 2013, end: 2014
  3. LOVASTATIN. [Concomitant]
     Active Substance: LOVASTATIN
     Indication: BLOOD CHOLESTEROL
     Route: 065
     Dates: start: 2006

REACTIONS (4)
  - Adverse event [Unknown]
  - Hypoaesthesia [Not Recovered/Not Resolved]
  - Back pain [Unknown]
  - Ketoacidosis [Unknown]
